FAERS Safety Report 14672884 (Version 2)
Quarter: 2018Q2

REPORT INFORMATION
  Report Type: Spontaneous
  Country: US (occurrence: US)
  Receive Date: 20180323
  Receipt Date: 20180403
  Transmission Date: 20180711
  Serious: Yes (Hospitalization, Other)
  Sender: FDA-Public Use
  Company Number: US-AUROBINDO-AUR-APL-2018-015522

PATIENT
  Age: 47 Year
  Sex: Female

DRUGS (3)
  1. TACROLIMUS. [Suspect]
     Active Substance: TACROLIMUS
     Indication: IMMUNOSUPPRESSANT DRUG THERAPY
     Dosage: ()
     Route: 065
  2. MYCOPHENOL (MYCOPHENOLATE MOFETIL) [Suspect]
     Active Substance: MYCOPHENOLATE MOFETIL
     Indication: IMMUNOSUPPRESSANT DRUG THERAPY
     Dosage: ()
     Route: 065
  3. PREDNISONE. [Suspect]
     Active Substance: PREDNISONE
     Indication: IMMUNOSUPPRESSANT DRUG THERAPY
     Dosage: ()
     Route: 065

REACTIONS (16)
  - Histoplasmosis [Recovering/Resolving]
  - Intestinal mass [None]
  - Erosive duodenitis [None]
  - Haemorrhagic anaemia [None]
  - Granuloma [None]
  - Electrolyte imbalance [None]
  - Gastric ulcer haemorrhage [Recovering/Resolving]
  - Normocytic anaemia [Recovering/Resolving]
  - Acute kidney injury [None]
  - Opportunistic infection [None]
  - Infection in an immunocompromised host [None]
  - Hypoalbuminaemia [None]
  - Large intestinal ulcer [Recovering/Resolving]
  - Gastrointestinal erosion [None]
  - Complications of transplanted kidney [None]
  - Drug interaction [None]
